FAERS Safety Report 20006721 (Version 1)
Quarter: 2021Q4

REPORT INFORMATION
  Report Type: Spontaneous
  Country: GB (occurrence: GB)
  Receive Date: 20211028
  Receipt Date: 20211028
  Transmission Date: 20220303
  Serious: Yes (Life-Threatening, Hospitalization, Other)
  Sender: FDA-Public Use
  Company Number: None

PATIENT
  Age: 62 Year
  Sex: Female
  Weight: 56 kg

DRUGS (8)
  1. AMLODIPINE [Suspect]
     Active Substance: AMLODIPINE BESYLATE
     Indication: Product used for unknown indication
     Dosage: 1 TABLET ONCE DAY, 5MG
     Dates: start: 20210831
  2. OMEPRAZOLE [Suspect]
     Active Substance: OMEPRAZOLE
     Indication: Product used for unknown indication
     Dosage: 20MG
  3. PERINDOPRIL ERBUMINE [Suspect]
     Active Substance: PERINDOPRIL ERBUMINE
     Indication: Product used for unknown indication
     Dosage: 1 TABLET ONCE A DAY,  2MG
     Dates: start: 20210831
  4. CODEINE [Suspect]
     Active Substance: CODEINE
     Indication: Product used for unknown indication
     Dosage: 1 TO 2 TABLETS FOUR TIMES DAILY WHEN REQUIRED,UNK
     Dates: start: 20210729, end: 20210831
  5. EZETIMIBE [Concomitant]
     Active Substance: EZETIMIBE
     Dosage: 1 TABLET ONCE A DAY, 10MG
     Dates: start: 20210831
  6. AMLODIPINE [Concomitant]
     Active Substance: AMLODIPINE BESYLATE
     Dosage: 1 TABLET ONCE A DAY
     Dates: start: 20210729
  7. CODEINE [Concomitant]
     Active Substance: CODEINE
     Dosage: 1 TO 2 TABLETS FOUR TIMES DAILY WHEN REQUIRED.
     Dates: start: 20210729
  8. PERINDOPRIL ERBUMINE [Concomitant]
     Active Substance: PERINDOPRIL ERBUMINE
     Dosage: 1 TABLET ONCE A DAY NOTES FOR PATIENT: PLEASE BOOK MEDICATION REVIEW
     Dates: start: 20210729

REACTIONS (5)
  - Loss of consciousness [Unknown]
  - Hypocalcaemia [Recovering/Resolving]
  - Syncope [Unknown]
  - Hypomagnesaemia [Recovering/Resolving]
  - Humerus fracture [Unknown]

NARRATIVE: CASE EVENT DATE: 20210830
